FAERS Safety Report 7907486-6 (Version None)
Quarter: 2011Q4

REPORT INFORMATION
  Report Type: 
  Country: None (occurrence: None)
  Receive Date: 20111109
  Receipt Date: 20111109
  Transmission Date: 20120403
  Serious: Yes (Death, Hospitalization)
  Sender: FDA-Public Use
  Company Number: None

PATIENT
  Sex: Female
  Weight: 79.8 kg

DRUGS (2)
  1. CARBOPLATIN [Suspect]
     Dosage: 526 MG
     Dates: end: 20111007
  2. TAXOL [Suspect]
     Dosage: 312 MG
     Dates: end: 20111007

REACTIONS (9)
  - RESPIRATORY ARREST [None]
  - PLATELET COUNT DECREASED [None]
  - OXYGEN SATURATION DECREASED [None]
  - BLOOD CREATININE INCREASED [None]
  - HYPOTENSION [None]
  - HEART RATE INCREASED [None]
  - WHITE BLOOD CELL COUNT DECREASED [None]
  - HAEMOGLOBIN DECREASED [None]
  - GENERAL PHYSICAL HEALTH DETERIORATION [None]
